FAERS Safety Report 5697444-7 (Version None)
Quarter: 2008Q2

REPORT INFORMATION
  Report Type: 
  Country: None (occurrence: None)
  Receive Date: 20080404
  Receipt Date: 20080404
  Transmission Date: 20081010
  Serious: Yes (Disabling)
  Sender: FDA-Public Use
  Company Number: None

PATIENT
  Age: 64 Year
  Sex: Female
  Weight: 70.3075 kg

DRUGS (4)
  1. LEVAQUIN [Suspect]
     Indication: PNEUMONIA
     Dosage: ONE A DAY
     Dates: start: 20071223
  2. SINEMET [Concomitant]
  3. ARMOUR [Concomitant]
  4. ACTONEL [Concomitant]

REACTIONS (8)
  - ANXIETY [None]
  - INITIAL INSOMNIA [None]
  - INSOMNIA [None]
  - MIDDLE INSOMNIA [None]
  - MUSCULAR WEAKNESS [None]
  - PANIC ATTACK [None]
  - RESTLESSNESS [None]
  - TREMOR [None]
